FAERS Safety Report 14486120 (Version 2)
Quarter: 2018Q1

REPORT INFORMATION
  Report Type: Report from Study
  Country: US (occurrence: US)
  Receive Date: 20180205
  Receipt Date: 20180326
  Transmission Date: 20180509
  Serious: Yes (Other)
  Sender: FDA-Public Use
  Company Number: US-JNJFOC-20171207136

PATIENT
  Age: 13 Year
  Sex: Male
  Weight: 36.4 kg

DRUGS (3)
  1. REMICADE [Suspect]
     Active Substance: INFLIXIMAB
     Indication: CROHN^S DISEASE
     Route: 042
  2. FERROUS GLUCONATE [Concomitant]
     Active Substance: FERROUS GLUCONATE
     Indication: IRON DEFICIENCY
     Route: 065
     Dates: start: 20170329
  3. REMICADE [Suspect]
     Active Substance: INFLIXIMAB
     Indication: CROHN^S DISEASE
     Route: 042
     Dates: start: 20170526

REACTIONS (5)
  - Product use issue [Unknown]
  - Off label use [Unknown]
  - Growth retardation [Unknown]
  - Drug specific antibody present [Recovered/Resolved]
  - Drug level below therapeutic [Recovered/Resolved]

NARRATIVE: CASE EVENT DATE: 20171129
